FAERS Safety Report 12343639 (Version 2)
Quarter: 2016Q3

REPORT INFORMATION
  Report Type: Spontaneous
  Country: FR (occurrence: FR)
  Receive Date: 20160506
  Receipt Date: 20160707
  Transmission Date: 20161109
  Serious: Yes (Hospitalization, Other)
  Sender: FDA-Public Use
  Company Number: FR-ASTRAZENECA-2016SE35529

PATIENT
  Age: 884 Month
  Sex: Female

DRUGS (9)
  1. KOTOR ARTICULATIONS [Concomitant]
     Dates: start: 201510, end: 20160314
  2. PROBIODIET [Concomitant]
     Dates: start: 201510, end: 20160314
  3. CRESTOR [Suspect]
     Active Substance: ROSUVASTATIN CALCIUM
     Indication: DYSLIPIDAEMIA
     Route: 048
     Dates: end: 20160314
  4. EFFERALGAN [Suspect]
     Active Substance: ACETAMINOPHEN
     Indication: PAIN
     Dosage: 500 MG, PUNCTUALLY
     Route: 048
     Dates: end: 201603
  5. OROCAL D3 [Suspect]
     Active Substance: CALCIUM CARBONATE\CHOLECALCIFEROL
     Route: 048
  6. CITALOPRAM [Suspect]
     Active Substance: CITALOPRAM HYDROBROMIDE
     Route: 048
     Dates: end: 20160321
  7. COTAREG [Suspect]
     Active Substance: HYDROCHLOROTHIAZIDE\VALSARTAN
     Indication: HYPERTENSION
     Dosage: 160 MG + 12.5 MG PER DAY AT MORNING
     Route: 048
  8. PERFOVITOL [Concomitant]
     Dates: start: 201510, end: 20160314
  9. SOTALOL. [Suspect]
     Active Substance: SOTALOL
     Indication: HYPERTENSION
     Route: 048

REACTIONS (4)
  - Mixed liver injury [Recovered/Resolved]
  - Blood iron increased [Unknown]
  - Hepatitis [Recovered/Resolved]
  - Creatinine renal clearance decreased [Unknown]

NARRATIVE: CASE EVENT DATE: 201603
